FAERS Safety Report 10236864 (Version 19)
Quarter: 2024Q1

REPORT INFORMATION
  Report Type: Spontaneous
  Country: US (occurrence: US)
  Receive Date: 20140613
  Receipt Date: 20240220
  Transmission Date: 20240410
  Serious: Yes (Hospitalization, Other)
  Sender: FDA-Public Use
  Company Number: US-PFIZER INC-2014161083

PATIENT
  Age: 52 Year
  Sex: Female

DRUGS (66)
  1. XELJANZ [Suspect]
     Active Substance: TOFACITINIB CITRATE
     Indication: Rheumatoid arthritis
     Dosage: 5 MG ORAL IN MORNING
     Route: 048
     Dates: start: 201308
  2. XELJANZ [Suspect]
     Active Substance: TOFACITINIB CITRATE
     Dosage: 10 MG ORAL AT DINNER
     Route: 048
     Dates: start: 201308
  3. XELJANZ [Suspect]
     Active Substance: TOFACITINIB CITRATE
     Dosage: 5 MG, 2X/DAY
     Route: 048
     Dates: start: 201311
  4. XELJANZ [Suspect]
     Active Substance: TOFACITINIB CITRATE
     Dosage: 10 MG, 2X/DAY
     Route: 048
  5. XELJANZ [Suspect]
     Active Substance: TOFACITINIB CITRATE
     Dosage: 20 MG, DAILY (QTY: 120/DAY SUPPLY 30)
     Route: 048
  6. XELJANZ [Suspect]
     Active Substance: TOFACITINIB CITRATE
     Dosage: 15 MG, 1X/DAY (A XELJANZ 5 MG TABLET IN THE MORNINGS AND A XELJANZ 10 MG TABLET AT NIGHT)
     Dates: start: 20210813
  7. ADVIL [Concomitant]
     Active Substance: IBUPROFEN
     Dosage: UNK
  8. AMOXICILLIN [Concomitant]
     Active Substance: AMOXICILLIN
     Dosage: UNK
     Dates: start: 2008
  9. ASPIRIN [Concomitant]
     Active Substance: ASPIRIN
     Dosage: UNK
     Dates: start: 201312
  10. ARAVA [Concomitant]
     Active Substance: LEFLUNOMIDE
     Dosage: UNK
     Dates: start: 2011
  11. CALCIUM [Concomitant]
     Active Substance: CALCIUM
     Dosage: UNK
     Dates: start: 201509
  12. CINNAMON [Concomitant]
     Active Substance: CINNAMON
     Dosage: 500 MG
  13. CRESTOR [Concomitant]
     Active Substance: ROSUVASTATIN CALCIUM
     Dosage: UNK
     Dates: end: 2014
  14. DILANTIN [Concomitant]
     Active Substance: PHENYTOIN
     Dosage: UNK
     Dates: start: 2004
  15. LEXAPRO [Concomitant]
     Active Substance: ESCITALOPRAM OXALATE
     Dosage: UNK
     Dates: end: 201507
  16. LISINOPRIL [Concomitant]
     Active Substance: LISINOPRIL
     Dosage: UNK
     Dates: start: 2012
  17. SINGULAIR [Concomitant]
     Active Substance: MONTELUKAST SODIUM
     Dosage: UNK
     Dates: start: 2012
  18. SKELAXIN [Concomitant]
     Active Substance: METAXALONE
     Dosage: UNK
     Dates: start: 2008
  19. SYNTHROID [Concomitant]
     Active Substance: LEVOTHYROXINE SODIUM
     Dosage: UNK
     Dates: start: 2010
  20. PLAVIX [Concomitant]
     Active Substance: CLOPIDOGREL BISULFATE
     Dosage: UNK
     Dates: end: 201508
  21. PREMARIN [Concomitant]
     Active Substance: ESTROGENS, CONJUGATED
     Dosage: UNK
     Dates: end: 201501
  22. PROVERA [Concomitant]
     Active Substance: MEDROXYPROGESTERONE ACETATE
     Dosage: UNK
     Dates: end: 201501
  23. PROVIGIL [Concomitant]
     Active Substance: MODAFINIL
     Dosage: UNK
     Dates: start: 2008
  24. XANAX [Concomitant]
     Active Substance: ALPRAZOLAM
     Dosage: UNK
     Dates: start: 2010
  25. IMITREX [Concomitant]
     Active Substance: SUMATRIPTAN SUCCINATE
     Dosage: UNK
     Dates: end: 201401
  26. PERCOCET [Concomitant]
     Active Substance: ACETAMINOPHEN\OXYCODONE HYDROCHLORIDE
     Dosage: UNK
     Dates: start: 2008
  27. MIRAPEX [Concomitant]
     Active Substance: PRAMIPEXOLE DIHYDROCHLORIDE
     Dosage: UNK
     Dates: end: 2014
  28. OSCAL [Concomitant]
     Active Substance: CALCIUM CARBONATE
     Dosage: UNK
  29. CRANBERRY [Concomitant]
     Active Substance: CRANBERRY
     Dosage: UNK (CRANBERRY 12)
  30. FISH OIL [Concomitant]
     Active Substance: FISH OIL
     Dosage: UNK
  31. VITAMIN D3 [Concomitant]
     Active Substance: CHOLECALCIFEROL
     Dosage: UNK
  32. VIIBRYD [Concomitant]
     Active Substance: VILAZODONE HYDROCHLORIDE
     Dosage: 40 MG, UNK
     Dates: start: 201508
  33. LASIX [Concomitant]
     Active Substance: FUROSEMIDE
     Dosage: 20 MG, UNK
  34. REQUIP [Concomitant]
     Active Substance: ROPINIROLE HYDROCHLORIDE
     Dosage: 3 MG, UNK
  35. PREDNISONE [Concomitant]
     Active Substance: PREDNISONE
     Dosage: 5 MG, 2X/DAY
  36. IBUPROFEN IB [Concomitant]
     Active Substance: IBUPROFEN
     Dosage: 100 MG
  37. FISH OIL\OMEGA-3 FATTY ACIDS [Concomitant]
     Active Substance: FISH OIL\OMEGA-3 FATTY ACIDS
     Dosage: 1000 MG (SFGT)
  38. CALCIUM [Concomitant]
     Active Substance: CALCIUM
     Dosage: 500 MG
  39. OS-CAL ULTRA [CALCIUM] [Concomitant]
  40. DESVENLAFAXINE SUCCINATE [Concomitant]
     Active Substance: DESVENLAFAXINE SUCCINATE
     Dosage: UNK
  41. GABAPENTIN [Concomitant]
     Active Substance: GABAPENTIN
     Dosage: UNK
  42. RISEDRONATE SODIUM [Concomitant]
     Active Substance: RISEDRONATE SODIUM
     Dosage: UNK
  43. EXCEDRIN MIGRAINE [Concomitant]
     Active Substance: ACETAMINOPHEN\ASPIRIN\CAFFEINE
     Dosage: UNK
  44. LAMOTRIGINE [Concomitant]
     Active Substance: LAMOTRIGINE
     Dosage: UNK
  45. PRISTIQ EXTENDED-RELEASE [Concomitant]
     Active Substance: DESVENLAFAXINE SUCCINATE
     Dosage: UNK
  46. SUDAFED NASAL DECONGESTANT MAXIMUM STRENGTH [Concomitant]
     Active Substance: PSEUDOEPHEDRINE HYDROCHLORIDE
     Dosage: UNK
  47. CHLORHEXIDINE GLUCONATE [Concomitant]
     Active Substance: CHLORHEXIDINE GLUCONATE
  48. ACETAMINOPHEN\HYDROCODONE [Concomitant]
     Active Substance: ACETAMINOPHEN\HYDROCODONE
  49. ROPINIROLE [Concomitant]
     Active Substance: ROPINIROLE
  50. LEVOTHYROXINE [Concomitant]
     Active Substance: LEVOTHYROXINE\LEVOTHYROXINE SODIUM
  51. ROSUVASTATIN [Concomitant]
     Active Substance: ROSUVASTATIN
  52. MONTELUKAST [Concomitant]
     Active Substance: MONTELUKAST SODIUM
  53. FUROSEMIDE [Concomitant]
     Active Substance: FUROSEMIDE
  54. OXYCODONE [Concomitant]
     Active Substance: OXYCODONE\OXYCODONE HYDROCHLORIDE
  55. METHOCARBAMOL [Concomitant]
     Active Substance: METHOCARBAMOL
  56. VILAZODONE [Concomitant]
     Active Substance: VILAZODONE
  57. BACLOFEN [Concomitant]
     Active Substance: BACLOFEN
  58. POLYETHYLENE GLYCOLS [Concomitant]
     Active Substance: POLYETHYLENE GLYCOLS
     Dosage: 33 - 17 G/DO
  59. ALPRAZOLAM [Concomitant]
     Active Substance: ALPRAZOLAM
  60. PROPRANOLOL HYDROCHLORIDE [Concomitant]
     Active Substance: PROPRANOLOL HYDROCHLORIDE
  61. MUPIROCIN [Concomitant]
     Active Substance: MUPIROCIN
  62. PHENYTOIN SODIUM [Concomitant]
     Active Substance: PHENYTOIN SODIUM
  63. ALLERGY RELIEF [CETIRIZINE HYDROCHLORIDE] [Concomitant]
     Dosage: 25 MG
  64. ASPIRIN [Concomitant]
     Active Substance: ASPIRIN
  65. COENZYME Q10 [Concomitant]
     Active Substance: DIETARY SUPPLEMENT\UBIDECARENONE
     Dosage: 50 MG
  66. VITAMIN B2 [Concomitant]
     Active Substance: RIBOFLAVIN
     Dosage: 100 MG

REACTIONS (7)
  - Spinal operation [Recovering/Resolving]
  - Staphylococcal infection [Recovered/Resolved]
  - Psoriatic arthropathy [Recovered/Resolved]
  - COVID-19 [Recovered/Resolved]
  - Condition aggravated [Recovering/Resolving]
  - Drug ineffective [Unknown]
  - Off label use [Unknown]

NARRATIVE: CASE EVENT DATE: 20130801
